FAERS Safety Report 23081141 (Version 2)
Quarter: 2023Q4

REPORT INFORMATION
  Report Type: Spontaneous
  Country: US (occurrence: US)
  Receive Date: 20231018
  Receipt Date: 20231127
  Transmission Date: 20240110
  Serious: No
  Sender: FDA-Public Use
  Company Number: US-BAUSCHBL-2023BNL009902

PATIENT
  Sex: Female

DRUGS (4)
  1. LUMIFY [Suspect]
     Active Substance: BRIMONIDINE TARTRATE
     Indication: Ocular hyperaemia
     Dosage: 2 DROPS IN EACH EYE
     Route: 047
     Dates: start: 20231010
  2. LUMIFY [Suspect]
     Active Substance: BRIMONIDINE TARTRATE
  3. REFRESH (CARMELLOSE) [Concomitant]
     Indication: Product used for unknown indication
  4. EQUATE DRY EYE RELIEF [Concomitant]
     Indication: Product used for unknown indication

REACTIONS (4)
  - Eye irritation [Not Recovered/Not Resolved]
  - Ocular hyperaemia [Unknown]
  - Disease recurrence [Unknown]
  - Therapeutic product effect incomplete [Unknown]

NARRATIVE: CASE EVENT DATE: 20231010
